FAERS Safety Report 14038523 (Version 1)
Quarter: 2017Q4

REPORT INFORMATION
  Report Type: Spontaneous
  Country: JP (occurrence: JP)
  Receive Date: 20171004
  Receipt Date: 20171004
  Transmission Date: 20180321
  Serious: Yes (Other)
  Sender: FDA-Public Use
  Company Number: JP-PFIZER INC-2017427784

PATIENT
  Sex: Female

DRUGS (1)
  1. ZOSYN [Suspect]
     Active Substance: PIPERACILLIN SODIUM\TAZOBACTAM SODIUM
     Dosage: UNK
     Route: 041
     Dates: end: 20170920

REACTIONS (5)
  - Urinary retention [Unknown]
  - Genital haemorrhage [Unknown]
  - Dyspnoea [Unknown]
  - Rhabdomyolysis [Unknown]
  - Generalised oedema [Unknown]
